FAERS Safety Report 9580447 (Version 1)
Quarter: 2013Q3

REPORT INFORMATION
  Report Type: Spontaneous
  Country: US (occurrence: None)
  Receive Date: 20130916
  Receipt Date: 20130916
  Transmission Date: 20140515
  Serious: Yes (Other)
  Sender: FDA-Public Use
  Company Number: JPI-P-023564

PATIENT
  Age: 50 Year
  Sex: Male

DRUGS (7)
  1. XYREM [Suspect]
     Indication: NARCOLEPSY
     Route: 048
     Dates: start: 20040618
  2. ARMODAFINIL PSYCHOSTIMULANTS AND NOOTROPICS [Concomitant]
  3. METHYLPHENIDATE HYDROCHLORIDE [Concomitant]
  4. LAMOTRIGINE [Concomitant]
  5. HYDROCHLOROTHIAZIDE [Concomitant]
  6. AMLODIPINE BESYLATE AND BENAZEPRIL HCL [Concomitant]
  7. ATORVASTATIN CALCIUM [Concomitant]

REACTIONS (1)
  - Sleep apnoea syndrome [None]
